FAERS Safety Report 19936725 (Version 1)
Quarter: 2021Q4

REPORT INFORMATION
  Report Type: Spontaneous
  Country: CN (occurrence: CN)
  Receive Date: 20211008
  Receipt Date: 20211008
  Transmission Date: 20220304
  Serious: Yes (Hospitalization, Other)
  Sender: FDA-Public Use
  Company Number: CN-BAXTER-2021BAX031296

PATIENT
  Age: 15 Year
  Sex: Male
  Weight: 63.5 kg

DRUGS (11)
  1. IFOSFAMIDE [Suspect]
     Active Substance: IFOSFAMIDE
     Indication: Osteosarcoma
     Dosage: PAST REGIMEN
     Route: 065
  2. IFOSFAMIDE [Suspect]
     Active Substance: IFOSFAMIDE
     Dosage: IFOSFAMIDE 5.0G + NS 500ML, DAYS 1-4
     Route: 041
     Dates: start: 20210819, end: 20210822
  3. IFOSFAMIDE [Suspect]
     Active Substance: IFOSFAMIDE
     Dosage: IFOSFAMIDE + NS, DOSE REINTRODUCED
     Route: 041
  4. SODIUM CHLORIDE [Suspect]
     Active Substance: SODIUM CHLORIDE
     Indication: Medication dilution
     Dosage: IFOSFAMIDE 5.0G + NS 500ML, DAYS 1-4
     Route: 041
     Dates: start: 20210819, end: 20210822
  5. SODIUM CHLORIDE [Suspect]
     Active Substance: SODIUM CHLORIDE
     Dosage: ETOPOSIDE 125MG + NS 500ML, DAYS 1-4
     Route: 041
     Dates: start: 20210819, end: 20210822
  6. SODIUM CHLORIDE [Suspect]
     Active Substance: SODIUM CHLORIDE
     Dosage: IFOSFAMIDE+ NS, DOSE RE-INTRODUCED
     Route: 041
  7. SODIUM CHLORIDE [Suspect]
     Active Substance: SODIUM CHLORIDE
     Dosage: ETOPOSIDE + NS, DOSE RE-INTRODUCED
     Route: 041
  8. ETOPOSIDE [Suspect]
     Active Substance: ETOPOSIDE
     Indication: Osteosarcoma
     Dosage: ETOPOSIDE 125MG + NS 500ML, DAYS 1-4
     Route: 041
     Dates: start: 20210819, end: 20210822
  9. ETOPOSIDE [Suspect]
     Active Substance: ETOPOSIDE
     Dosage: ETOPOSIDE + NS, DOSE REINTRODUCED
     Route: 041
  10. LENVIMA [Suspect]
     Active Substance: LENVATINIB
     Indication: Osteosarcoma
     Route: 048
     Dates: start: 20210819, end: 20210822
  11. LENVIMA [Suspect]
     Active Substance: LENVATINIB
     Dosage: DOSE REINTRODUCED
     Route: 048

REACTIONS (2)
  - Myelosuppression [Recovered/Resolved]
  - Myelosuppression [Recovering/Resolving]

NARRATIVE: CASE EVENT DATE: 20210827
